FAERS Safety Report 17925835 (Version 1)
Quarter: 2020Q2

REPORT INFORMATION
  Report Type: Spontaneous
  Country: US (occurrence: US)
  Receive Date: 20200623
  Receipt Date: 20200623
  Transmission Date: 20200714
  Serious: Yes (Hospitalization, Other)
  Sender: FDA-Public Use
  Company Number: US-ALVOGEN-2020-ALVOGEN-108641

PATIENT
  Sex: Male

DRUGS (2)
  1. OXYCODONE [Suspect]
     Active Substance: OXYCODONE
     Indication: PRODUCT USED FOR UNKNOWN INDICATION
     Dosage: 3-4 FAKE OXYCODONE 10-325 MG PILLS
  2. FENTANYL. [Suspect]
     Active Substance: FENTANYL
     Indication: PRODUCT USED FOR UNKNOWN INDICATION

REACTIONS (6)
  - White matter lesion [Unknown]
  - Suspected counterfeit product [Unknown]
  - Overdose [Unknown]
  - Basal ganglion degeneration [Unknown]
  - Unresponsive to stimuli [Unknown]
  - Leukoencephalopathy [Unknown]
